FAERS Safety Report 13945406 (Version 6)
Quarter: 2018Q3

REPORT INFORMATION
  Report Type: Spontaneous
  Country: US (occurrence: US)
  Receive Date: 20170907
  Receipt Date: 20180801
  Transmission Date: 20181010
  Serious: Yes (Hospitalization, Other)
  Sender: FDA-Public Use
  Company Number: US-PFIZER INC-2017381532

PATIENT
  Age: 86 Year
  Sex: Female

DRUGS (1)
  1. ELELYSO [Suspect]
     Active Substance: TALIGLUCERASE ALFA
     Indication: GAUCHER^S DISEASE
     Dosage: UNK

REACTIONS (8)
  - Fall [Recovered/Resolved]
  - Arrhythmia [Unknown]
  - Myocardial infarction [Unknown]
  - Muscle strain [Unknown]
  - Patella fracture [Not Recovered/Not Resolved]
  - Heart rate increased [Unknown]
  - Alopecia [Recovered/Resolved]
  - Contusion [Recovered/Resolved]

NARRATIVE: CASE EVENT DATE: 2017
